FAERS Safety Report 18697359 (Version 1)
Quarter: 2021Q1

REPORT INFORMATION
  Report Type: Spontaneous
  Country: GR (occurrence: GR)
  Receive Date: 20210105
  Receipt Date: 20210105
  Transmission Date: 20210419
  Serious: Yes (Other)
  Sender: FDA-Public Use
  Company Number: GR-VALIDUS PHARMACEUTICALS LLC-GR-2020VAL001106

PATIENT
  Sex: Female

DRUGS (2)
  1. FRUMIL [Suspect]
     Active Substance: AMILORIDE HYDROCHLORIDE\FUROSEMIDE
     Indication: PRODUCT USED FOR UNKNOWN INDICATION
     Dosage: UNK
     Route: 065
  2. LASIX [Suspect]
     Active Substance: FUROSEMIDE
     Indication: PRODUCT USED FOR UNKNOWN INDICATION
     Dosage: HALF TAB IN MORNING AND THE OTHER HALF IN THE NOON
     Route: 065

REACTIONS (4)
  - Peripheral swelling [Unknown]
  - Hypotension [Unknown]
  - Hypothermia [Unknown]
  - Product availability issue [Unknown]
